FAERS Safety Report 26123628 (Version 2)
Quarter: 2025Q4

REPORT INFORMATION
  Report Type: Spontaneous
  Country: EU (occurrence: EU)
  Receive Date: 20251205
  Receipt Date: 20251210
  Transmission Date: 20260118
  Serious: Yes (Hospitalization, Other)
  Sender: AUROBINDO
  Company Number: EU-JNJFOC-20251153373

PATIENT
  Age: 88 Year
  Sex: Female

DRUGS (2)
  1. BORTEZOMIB [Suspect]
     Active Substance: BORTEZOMIB
     Indication: Plasma cell myeloma
     Dosage: 2.18 MILLIGRAM/SQ. METER
     Dates: start: 20220124, end: 20250319
  2. DARZALEX [Suspect]
     Active Substance: DARATUMUMAB
     Indication: Plasma cell myeloma
     Dosage: 1800 MILLIGRAM
     Dates: start: 20220919, end: 20250319

REACTIONS (3)
  - Pneumonia [Recovered/Resolved with Sequelae]
  - Endocarditis enterococcal [Recovered/Resolved with Sequelae]
  - Vascular device infection [Unknown]

NARRATIVE: CASE EVENT DATE: 20250401
